FAERS Safety Report 14936797 (Version 1)
Quarter: 2018Q2

REPORT INFORMATION
  Report Type: Spontaneous
  Country: FR (occurrence: FR)
  Receive Date: 20180525
  Receipt Date: 20180525
  Transmission Date: 20180711
  Serious: Yes (Other)
  Sender: FDA-Public Use
  Company Number: FR-TEVA-2018-FR-896722

PATIENT
  Age: 40 Year
  Sex: Male
  Weight: 104 kg

DRUGS (14)
  1. ETOPOSIDE. [Suspect]
     Active Substance: ETOPOSIDE
     Indication: ACUTE LYMPHOCYTIC LEUKAEMIA
     Route: 042
     Dates: start: 20171117, end: 20180118
  2. PENTACARINAT [Concomitant]
     Active Substance: PENTAMIDINE ISETHIONATE
     Route: 065
  3. NELARABINE [Suspect]
     Active Substance: NELARABINE
     Indication: ACUTE LYMPHOCYTIC LEUKAEMIA
     Route: 042
     Dates: start: 20171117, end: 20171218
  4. CYCLOPHOSPHAMIDE. [Suspect]
     Active Substance: CYCLOPHOSPHAMIDE
     Indication: ACUTE LYMPHOCYTIC LEUKAEMIA
     Route: 042
     Dates: start: 20170731, end: 20171218
  5. ZARZIO [Concomitant]
     Active Substance: FILGRASTIM
     Route: 048
  6. ZINNAT [Concomitant]
     Active Substance: CEFUROXIME AXETIL
     Route: 048
  7. METHOTREXATE. [Suspect]
     Active Substance: METHOTREXATE
     Indication: ACUTE LYMPHOCYTIC LEUKAEMIA
     Route: 042
     Dates: start: 20170731
  8. VINCRISTINE [Suspect]
     Active Substance: VINCRISTINE
     Indication: ACUTE LYMPHOCYTIC LEUKAEMIA
     Route: 042
     Dates: start: 20170731, end: 20171021
  9. CYTARABINE. [Suspect]
     Active Substance: CYTARABINE
     Indication: ACUTE LYMPHOCYTIC LEUKAEMIA
     Route: 042
     Dates: start: 20170731, end: 20171220
  10. APREPITANT. [Concomitant]
     Active Substance: APREPITANT
     Route: 042
     Dates: start: 20170731, end: 20171218
  11. TRIFLUCAN [Concomitant]
     Active Substance: FLUCONAZOLE
     Route: 048
  12. ZELITREX [Concomitant]
     Active Substance: VALACYCLOVIR HYDROCHLORIDE
     Route: 048
  13. OFLOCET [Concomitant]
     Active Substance: OFLOXACIN
     Route: 048
  14. MERCAPTOPURINE. [Concomitant]
     Active Substance: MERCAPTOPURINE
     Route: 042
     Dates: start: 20170923, end: 20171021

REACTIONS (2)
  - Polyneuropathy [Not Recovered/Not Resolved]
  - Neuropathy peripheral [Not Recovered/Not Resolved]

NARRATIVE: CASE EVENT DATE: 20171117
